FAERS Safety Report 6836858-6 (Version None)
Quarter: 2010Q3

REPORT INFORMATION
  Report Type: 
  Country: None (occurrence: None)
  Receive Date: 20100713
  Receipt Date: 20070501
  Transmission Date: 20110219
  Serious: No
  Sender: FDA-Public Use
  Company Number: US-PFIZER INC-2007036000

PATIENT
  Age: 70 Year
  Sex: Female
  Weight: 73.181 kg

DRUGS (7)
  1. CHANTIX [Suspect]
     Indication: SMOKING CESSATION THERAPY
     Dates: start: 20070101, end: 20070101
  2. UNIVASC [Concomitant]
     Indication: HYPERTENSION
  3. ATENOLOL [Concomitant]
     Indication: HYPERTENSION
  4. ATIVAN [Concomitant]
     Indication: ANXIETY
  5. ZETIA [Concomitant]
     Indication: BLOOD CHOLESTEROL INCREASED
  6. LORCET-HD [Concomitant]
     Indication: PAIN IN EXTREMITY
  7. ASPIRINE [Concomitant]

REACTIONS (2)
  - FEELING ABNORMAL [None]
  - HEAD DISCOMFORT [None]
